FAERS Safety Report 5396549-8 (Version None)
Quarter: 2007Q3

REPORT INFORMATION
  Report Type: 
  Country: None (occurrence: None)
  Receive Date: 20070725
  Receipt Date: 20070717
  Transmission Date: 20080115
  Serious: Yes (Other)
  Sender: FDA-Public Use
  Company Number: US-JNJFOC-20070704280

PATIENT
  Sex: Male
  Weight: 120.2 kg

DRUGS (4)
  1. DURAGESIC-100 [Suspect]
     Indication: BACK PAIN
     Route: 062
  2. LUNESTA [Concomitant]
     Indication: SLEEP DISORDER
     Route: 048
  3. CELEXA [Concomitant]
     Indication: DEPRESSION
     Route: 048
  4. REQUIP [Concomitant]
     Indication: RESTLESS LEGS SYNDROME
     Route: 048

REACTIONS (5)
  - BLOOD TESTOSTERONE DECREASED [None]
  - CONSTIPATION [None]
  - INCORRECT DRUG ADMINISTRATION DURATION [None]
  - VOMITING [None]
  - WEIGHT DECREASED [None]
